FAERS Safety Report 4910719-1 (Version None)
Quarter: 2006Q1

REPORT INFORMATION
  Report Type: 
  Country: None (occurrence: None)
  Receive Date: 20060214
  Receipt Date: 20060206
  Transmission Date: 20060701
  Serious: Yes (Disabling, Other)
  Sender: FDA-Public Use
  Company Number: PHFR2006GB00754

PATIENT
  Age: 71 Year
  Sex: Male
  Weight: 76 kg

DRUGS (2)
  1. RIVASTIGMINE [Suspect]
     Indication: CONFUSIONAL STATE
     Dosage: 1.5 MG, QD
     Route: 048
     Dates: start: 20060107, end: 20060115
  2. MADOPAR [Concomitant]
     Dosage: 125 MG, QID
     Route: 048
     Dates: start: 19960101

REACTIONS (2)
  - ERYTHEMA MULTIFORME [None]
  - RASH [None]
